FAERS Safety Report 8274427-4 (Version None)
Quarter: 2012Q2

REPORT INFORMATION
  Report Type: 
  Country: None (occurrence: None)
  Receive Date: 20120411
  Receipt Date: 20120327
  Transmission Date: 20120825
  Serious: Yes (Hospitalization)
  Sender: FDA-Public Use
  Company Number: AU-ROCHE-1055279

PATIENT
  Sex: Female

DRUGS (1)
  1. ACTEMRA [Suspect]
     Indication: RHEUMATOID ARTHRITIS
     Dosage: VOLUME OF INFUSION: 28 ML
     Dates: start: 20120130

REACTIONS (6)
  - ABASIA [None]
  - DYSSTASIA [None]
  - ULCER [None]
  - RASH [None]
  - DIZZINESS [None]
  - MALAISE [None]
